FAERS Safety Report 7919055-2 (Version None)
Quarter: 2011Q4

REPORT INFORMATION
  Report Type: 
  Country: None (occurrence: None)
  Receive Date: 20111116
  Receipt Date: 20111107
  Transmission Date: 20120403
  Serious: Yes (Other)
  Sender: FDA-Public Use
  Company Number: CA-ASTRAZENECA-2011SE67293

PATIENT
  Age: 57 Year
  Sex: Female

DRUGS (4)
  1. CRESTOR [Suspect]
     Route: 048
  2. ANTI-HYPERTENSIVE [Concomitant]
  3. CRESTOR [Suspect]
     Route: 048
  4. DIABETES MEDICATIONS [Concomitant]

REACTIONS (12)
  - DIARRHOEA [None]
  - IMPAIRED WORK ABILITY [None]
  - ADVERSE REACTION [None]
  - GINGIVAL SWELLING [None]
  - VOMITING [None]
  - AMNESIA [None]
  - MUSCULAR WEAKNESS [None]
  - NAUSEA [None]
  - SWOLLEN TONGUE [None]
  - OEDEMA PERIPHERAL [None]
  - TOOTH EXTRACTION [None]
  - MUSCLE SPASMS [None]
